FAERS Safety Report 12166030 (Version 1)
Quarter: 2016Q1

REPORT INFORMATION
  Report Type: Spontaneous
  Country: IN (occurrence: IN)
  Receive Date: 20160309
  Receipt Date: 20160309
  Transmission Date: 20160526
  Serious: Yes (Disabling, Other)
  Sender: FDA-Public Use
  Company Number: IN-MYLANLABS-2016M1010315

PATIENT

DRUGS (2)
  1. PHENYTOIN. [Suspect]
     Active Substance: PHENYTOIN
     Indication: GLIOMA
     Dosage: 100MG UNDILUTED AS 2ML BOLUS
     Route: 013
  2. DEXAMETHASONE. [Concomitant]
     Active Substance: DEXAMETHASONE
     Indication: GLIOMA
     Dosage: 8MG
     Route: 013

REACTIONS (3)
  - Peripheral artery thrombosis [Not Recovered/Not Resolved]
  - Gangrene [Not Recovered/Not Resolved]
  - Drug administered at inappropriate site [Not Recovered/Not Resolved]
